FAERS Safety Report 5326874-8 (Version None)
Quarter: 2007Q2

REPORT INFORMATION
  Report Type: 
  Country: None (occurrence: None)
  Receive Date: 20070511
  Receipt Date: 20070425
  Transmission Date: 20071010
  Serious: Yes (Other)
  Sender: FDA-Public Use
  Company Number: DSA_29875_2007

PATIENT
  Age: 68 Year
  Sex: Male

DRUGS (13)
  1. DILTIAZEM [Suspect]
     Indication: ANGINA PECTORIS
     Dosage: (180 MG QD ORAL)
     Route: 048
     Dates: start: 19970101, end: 20060701
  2. DILTIAZEM [Suspect]
     Indication: HYPERTENSION
     Dosage: (180 MG QD ORAL)
     Route: 048
     Dates: start: 19970101, end: 20060701
  3. ASPIRIN [Concomitant]
  4. DOXAZOSIN MESYLATE [Concomitant]
  5. FUROSEMIDE [Concomitant]
  6. INDAPAMIDE [Concomitant]
  7. INSULIN [Concomitant]
  8. IRBESARTAN [Concomitant]
  9. ISOSORBIDE [Concomitant]
  10. METFORMIN HCL [Concomitant]
  11. OMEPRAZOLE [Concomitant]
  12. SIMVASTATIN [Concomitant]
  13. TAMSULOSIN HCL [Concomitant]

REACTIONS (2)
  - EOSINOPHILIA [None]
  - LYMPHOID TISSUE HYPERPLASIA [None]
